FAERS Safety Report 16525252 (Version 2)
Quarter: 2019Q3

REPORT INFORMATION
  Report Type: Report from Study
  Country: GB (occurrence: GB)
  Receive Date: 20190703
  Receipt Date: 20190830
  Transmission Date: 20191004
  Serious: Yes (Other)
  Sender: FDA-Public Use
  Company Number: PHHY2019GB150658

PATIENT
  Sex: Male

DRUGS (1)
  1. HYRIMOZ [Suspect]
     Active Substance: ADALIMUMAB-ADAZ
     Indication: COLITIS ULCERATIVE
     Dosage: 160MG WEEK 0, 80MG WEEK 2, 40MG WEEK 4
     Route: 065

REACTIONS (4)
  - Mucous stools [Unknown]
  - Drug ineffective [Unknown]
  - Haematochezia [Unknown]
  - Defaecation urgency [Unknown]
